FAERS Safety Report 22400192 (Version 1)
Quarter: 2023Q2

REPORT INFORMATION
  Report Type: Spontaneous
  Country: US (occurrence: None)
  Receive Date: 20230601
  Receipt Date: 20230601
  Transmission Date: 20230721
  Serious: Yes (Other)
  Sender: FDA-Public Use
  Company Number: None

PATIENT
  Age: 68 Year
  Sex: Male
  Weight: 96.75 kg

DRUGS (5)
  1. HOMEOPATHICS [Suspect]
     Active Substance: ARNICA MONTANA\CAUSTICUM\COMFREY ROOT\HOMEOPATHICS\LEDUM PALUSTRE TWIG\PSEUDOGNAPHALIUM OBTUSIFOLIUM
     Indication: Lice infestation
     Dosage: FREQUENCY : 3 TIMES A DAY;?OTHER ROUTE : SPRAY;?
     Route: 050
     Dates: start: 20230531, end: 20230601
  2. DEVICE [Concomitant]
     Active Substance: DEVICE
  3. METFORMIN [Concomitant]
     Active Substance: METFORMIN HYDROCHLORIDE
  4. INSULIN NOS [Concomitant]
     Active Substance: INSULIN NOS
  5. VITAMIN D NOS [Concomitant]
     Active Substance: VITAMIN D NOS

REACTIONS (3)
  - Thermal burn [None]
  - Rash [None]
  - Pain [None]

NARRATIVE: CASE EVENT DATE: 20230531
